FAERS Safety Report 20189524 (Version 1)
Quarter: 2021Q4

REPORT INFORMATION
  Report Type: Spontaneous
  Country: US (occurrence: None)
  Receive Date: 20211215
  Receipt Date: 20211215
  Transmission Date: 20220303
  Serious: Yes (Other)
  Sender: FDA-Public Use
  Company Number: None

PATIENT
  Age: 69 Year
  Sex: Male

DRUGS (2)
  1. FINASTERIDE [Suspect]
     Active Substance: FINASTERIDE
     Dosage: FREQUENCY : DAILY;?
     Route: 048
     Dates: start: 20200503, end: 20211203
  2. MINOXIDIL [Suspect]
     Active Substance: MINOXIDIL

REACTIONS (1)
  - Rash [None]

NARRATIVE: CASE EVENT DATE: 20211110
